FAERS Safety Report 7621238-6 (Version None)
Quarter: 2011Q3

REPORT INFORMATION
  Report Type: 
  Country: None (occurrence: None)
  Receive Date: 20110719
  Receipt Date: 20110715
  Transmission Date: 20111222
  Serious: Yes (Hospitalization)
  Sender: FDA-Public Use
  Company Number: US-B.I. PHARMACEUTICALS,INC./RIDGEFIELD-2011-BP-17817BP

PATIENT
  Sex: Male

DRUGS (3)
  1. PRADAXA [Suspect]
     Indication: ATRIAL FIBRILLATION
     Dosage: 300 MG
     Route: 048
     Dates: start: 20110201
  2. SINEMET [Concomitant]
     Indication: PARKINSON'S DISEASE
  3. DILANTIN [Concomitant]
     Indication: CONVULSION

REACTIONS (2)
  - HAEMATEMESIS [None]
  - OESOPHAGEAL IRRITATION [None]
